FAERS Safety Report 8223748-X (Version None)
Quarter: 2012Q1

REPORT INFORMATION
  Report Type: 
  Country: None (occurrence: None)
  Receive Date: 20120320
  Receipt Date: 20120320
  Transmission Date: 20120608
  Serious: Yes (Life-Threatening)
  Sender: FDA-Public Use
  Company Number: None

PATIENT
  Age: 61 Year
  Sex: Male
  Weight: 83.6 kg

DRUGS (2)
  1. SEVOFLURANE [Suspect]
     Indication: GENERAL ANAESTHESIA
     Dates: start: 20110801, end: 20110801
  2. ISOFLURANE [Suspect]
     Indication: GENERAL ANAESTHESIA
     Dates: start: 20110801, end: 20110801

REACTIONS (7)
  - HYPERTHERMIA MALIGNANT [None]
  - END-TIDAL CO2 INCREASED [None]
  - PROCEDURAL COMPLICATION [None]
  - METABOLIC ACIDOSIS [None]
  - RESPIRATORY ACIDOSIS [None]
  - BLOOD POTASSIUM INCREASED [None]
  - HYPOVENTILATION [None]
